FAERS Safety Report 16540414 (Version 1)
Quarter: 2019Q3

REPORT INFORMATION
  Report Type: Spontaneous
  Country: US (occurrence: US)
  Receive Date: 20190706
  Receipt Date: 20190706
  Transmission Date: 20191004
  Serious: No
  Sender: FDA-Public Use
  Company Number: None

PATIENT
  Age: 46 Year
  Sex: Female
  Weight: 63 kg

DRUGS (1)
  1. BARIUM CONTRAST [Suspect]
     Active Substance: BARIUM
     Indication: BARIUM ENEMA
     Dates: start: 20190705, end: 20190705

REACTIONS (2)
  - Post procedural complication [None]
  - Migraine [None]

NARRATIVE: CASE EVENT DATE: 20190705
